FAERS Safety Report 11255275 (Version 1)
Quarter: 2015Q3

REPORT INFORMATION
  Report Type: Spontaneous
  Country: US (occurrence: US)
  Receive Date: 20150709
  Receipt Date: 20150709
  Transmission Date: 20151125
  Serious: Yes (Hospitalization, Other)
  Sender: FDA-Public Use
  Company Number: US-MPIJNJ-2012-04358

PATIENT
  Age: 64 Year
  Sex: Female
  Weight: 75 kg

DRUGS (5)
  1. DEXAMETHASONE. [Suspect]
     Active Substance: DEXAMETHASONE
     Indication: PLASMA CELL MYELOMA
  2. VELCADE [Suspect]
     Active Substance: BORTEZOMIB
     Indication: PLASMA CELL MYELOMA
     Dosage: 2.2 MG, CYCLIC
     Route: 058
     Dates: start: 20120507, end: 20120607
  3. VELCADE [Suspect]
     Active Substance: BORTEZOMIB
     Dosage: 2.2 MG, CYCLIC
     Route: 042
     Dates: start: 20120705
  4. NEURONTIN [Concomitant]
     Active Substance: GABAPENTIN
     Indication: HYPOAESTHESIA
     Route: 048
  5. NEURONTIN [Concomitant]
     Active Substance: GABAPENTIN
     Indication: PARAESTHESIA

REACTIONS (5)
  - Hypoaesthesia [Recovering/Resolving]
  - Syncope [Unknown]
  - Pyrexia [Unknown]
  - Paraesthesia [Recovering/Resolving]
  - Nausea [Unknown]

NARRATIVE: CASE EVENT DATE: 20120601
